FAERS Safety Report 5426085-1 (Version None)
Quarter: 2007Q3

REPORT INFORMATION
  Report Type: 
  Country: None (occurrence: None)
  Receive Date: 20070823
  Receipt Date: 20070823
  Transmission Date: 20080115
  Serious: Yes (Hospitalization)
  Sender: FDA-Public Use
  Company Number: None

PATIENT
  Sex: Female
  Weight: 66.7 kg

DRUGS (7)
  1. MYCOPHENOLATE MOFETIL [Suspect]
     Indication: ORGAN TRANSPLANT
     Dosage: 500MG PO Q12
     Route: 048
     Dates: start: 20050319, end: 20061217
  2. LAMIVUDINE [Concomitant]
  3. TACROLIMUS [Concomitant]
  4. CALCIUM [Concomitant]
  5. INSULIN GLARG [Concomitant]
  6. NPH ILETIN II [Concomitant]
  7. RANITIDINE [Concomitant]

REACTIONS (3)
  - DIARRHOEA [None]
  - PYELONEPHRITIS [None]
  - UROSEPSIS [None]
